FAERS Safety Report 5884889-5 (Version None)
Quarter: 2008Q3

REPORT INFORMATION
  Report Type: 
  Country: None (occurrence: None)
  Receive Date: 20080916
  Receipt Date: 20080904
  Transmission Date: 20090109
  Serious: Yes (Other)
  Sender: FDA-Public Use
  Company Number: GB-ROCHE-582098

PATIENT
  Age: 51 Year
  Sex: Male

DRUGS (3)
  1. CELLCEPT [Suspect]
     Indication: IMMUNOSUPPRESSION
     Route: 065
  2. MABCAMPATH [Suspect]
     Indication: IMMUNOSUPPRESSION
     Dosage: THERAPY GIVEN IN TWO 30 MG DOSES.
     Route: 065
  3. TACROLIMUS [Suspect]
     Indication: IMMUNOSUPPRESSION
     Dosage: UNIT: NG/ML
     Route: 065

REACTIONS (8)
  - COMPLICATIONS OF TRANSPLANTED KIDNEY [None]
  - DIALYSIS [None]
  - DIARRHOEA [None]
  - INTESTINAL VILLI ATROPHY [None]
  - MALABSORPTION [None]
  - OXALOSIS [None]
  - RENAL IMPAIRMENT [None]
  - WEIGHT DECREASED [None]
